FAERS Safety Report 10303994 (Version 2)
Quarter: 2014Q3

REPORT INFORMATION
  Report Type: Spontaneous
  Country: US (occurrence: US)
  Receive Date: 20140714
  Receipt Date: 20140714
  Transmission Date: 20150326
  Serious: No
  Sender: FDA-Public Use
  Company Number: US-GILEAD-2013-0085584

PATIENT
  Age: 83 Year
  Sex: Female

DRUGS (6)
  1. LETAIRIS [Suspect]
     Active Substance: AMBRISENTAN
     Indication: PULMONARY HYPERTENSION
     Dosage: 5 MG, QD
     Route: 048
     Dates: start: 20130829
  2. LETAIRIS [Suspect]
     Active Substance: AMBRISENTAN
     Indication: MITRAL VALVE DISEASE MIXED
  3. COUMADIN [Concomitant]
     Active Substance: WARFARIN SODIUM
  4. LETAIRIS [Suspect]
     Active Substance: AMBRISENTAN
     Indication: CARDIAC FAILURE CONGESTIVE
  5. TYVASO [Concomitant]
     Active Substance: TREPROSTINIL
  6. LETAIRIS [Suspect]
     Active Substance: AMBRISENTAN
     Indication: DIASTOLIC DYSFUNCTION

REACTIONS (1)
  - Dyspnoea [Unknown]

NARRATIVE: CASE EVENT DATE: 20131011
